FAERS Safety Report 17988173 (Version 1)
Quarter: 2020Q3

REPORT INFORMATION
  Report Type: Spontaneous
  Country: FR (occurrence: FR)
  Receive Date: 20200707
  Receipt Date: 20200707
  Transmission Date: 20201103
  Serious: Yes (Hospitalization)
  Sender: FDA-Public Use
  Company Number: NVSC2020FR190483

PATIENT
  Age: 56 Year
  Sex: Male

DRUGS (1)
  1. CICLOPIROX MONOETHANOLAMINE [Suspect]
     Active Substance: CICLOPIROX OLAMINE
     Indication: INTERTRIGO
     Dosage: 1 DF, QD
     Route: 003
     Dates: start: 20200415, end: 20200418

REACTIONS (4)
  - Oedema peripheral [Recovering/Resolving]
  - Administration site dermatitis [Recovering/Resolving]
  - Plantar erythema [Recovering/Resolving]
  - Nail injury [Recovering/Resolving]

NARRATIVE: CASE EVENT DATE: 20200415
